FAERS Safety Report 5014665-7 (Version None)
Quarter: 2006Q2

REPORT INFORMATION
  Report Type: 
  Country: None (occurrence: None)
  Receive Date: 20060531
  Receipt Date: 20060523
  Transmission Date: 20061013
  Serious: Yes (Life-Threatening)
  Sender: FDA-Public Use
  Company Number: US-MERCK-0605USA04448

PATIENT
  Age: 37 Year
  Sex: Female

DRUGS (2)
  1. HYZAAR [Suspect]
     Indication: BLOOD PRESSURE
     Route: 048
     Dates: start: 20030101, end: 20060523
  2. [THERAPY UNSPECIFIED] [Concomitant]
     Route: 065

REACTIONS (1)
  - DRUG EXPOSURE DURING PREGNANCY [None]
